FAERS Safety Report 5934120-7 (Version None)
Quarter: 2008Q4

REPORT INFORMATION
  Report Type: 
  Country: None (occurrence: None)
  Receive Date: 20081028
  Receipt Date: 20081028
  Transmission Date: 20090506
  Serious: Yes (Life-Threatening)
  Sender: FDA-Public Use
  Company Number: None

PATIENT
  Age: 79 Year
  Sex: Male
  Weight: 103.2 kg

DRUGS (1)
  1. DOCETAXEL [Suspect]
     Indication: PROSTATE CANCER METASTATIC
     Dosage: 150 MG OTHER IV
     Route: 042
     Dates: start: 20080623, end: 20080715

REACTIONS (2)
  - ERYTHEMA [None]
  - RESPIRATORY DEPRESSION [None]
